FAERS Safety Report 6786345-9 (Version None)
Quarter: 2010Q2

REPORT INFORMATION
  Report Type: 
  Country: None (occurrence: None)
  Receive Date: 20100623
  Receipt Date: 20100603
  Transmission Date: 20101027
  Serious: Yes (Hospitalization)
  Sender: FDA-Public Use
  Company Number: PHHY2010US40359

PATIENT
  Age: 45 Year
  Sex: Female
  Weight: 83.9 kg

DRUGS (3)
  1. FANAPT [Suspect]
     Indication: SCHIZOPHRENIA
     Dosage: 6 MG, BID
     Route: 048
  2. LITHIUM [Interacting]
     Dosage: UNK,UNK
  3. PROZAC [Interacting]
     Dosage: UNK,UNK

REACTIONS (4)
  - DRUG INTERACTION [None]
  - DRUG LEVEL CHANGED [None]
  - HALLUCINATION, AUDITORY [None]
  - HALLUCINATION, VISUAL [None]
